FAERS Safety Report 4436927-4 (Version None)
Quarter: 2004Q3

REPORT INFORMATION
  Report Type: 
  Country: None (occurrence: None)
  Receive Date: 20040726
  Receipt Date: 20040330
  Transmission Date: 20050211
  Serious: No
  Sender: FDA-Public Use
  Company Number: USA040362706

PATIENT
  Age: 81 Year
  Sex: Female
  Weight: 68 kg

DRUGS (6)
  1. FORTEO [Suspect]
     Indication: OSTEOPOROSIS
     Dosage: 20 UG/1 DAY
     Dates: start: 20031101
  2. CALCIUM WITH VITAMIN D [Concomitant]
  3. QUININE [Concomitant]
  4. LORAZEPAM [Concomitant]
  5. LABETALOL HCL [Concomitant]
  6. FUROSEMIDE [Concomitant]

REACTIONS (2)
  - ARTHRALGIA [None]
  - PAIN IN EXTREMITY [None]
